FAERS Safety Report 5326311-3 (Version None)
Quarter: 2007Q2

REPORT INFORMATION
  Report Type: 
  Country: None (occurrence: None)
  Receive Date: 20070514
  Receipt Date: 20070514
  Transmission Date: 20071010
  Serious: No
  Sender: FDA-Public Use
  Company Number: None

PATIENT
  Age: 43 Year
  Sex: Male
  Weight: 67.586 kg

DRUGS (2)
  1. PAXIL [Suspect]
     Indication: ANXIETY
     Dosage: 40MG 1 PER DAY PO
     Route: 048
     Dates: start: 19981218, end: 20061217
  2. PAXIL [Suspect]
     Indication: DEPRESSION
     Dosage: 40MG 1 PER DAY PO
     Route: 048
     Dates: start: 19981218, end: 20061217

REACTIONS (58)
  - ABNORMAL BEHAVIOUR [None]
  - ABNORMAL DREAMS [None]
  - AGGRESSION [None]
  - AGITATION [None]
  - ANGER [None]
  - ASTHENIA [None]
  - BLEPHAROSPASM [None]
  - CHILLS [None]
  - COLD SWEAT [None]
  - CONDITION AGGRAVATED [None]
  - CONFUSIONAL STATE [None]
  - CONSTIPATION [None]
  - CRYING [None]
  - DECREASED APPETITE [None]
  - DEPRESSION [None]
  - DEREALISATION [None]
  - DISTURBANCE IN ATTENTION [None]
  - DIZZINESS [None]
  - DRUG WITHDRAWAL SYNDROME [None]
  - DRY MOUTH [None]
  - DYSARTHRIA [None]
  - DYSGEUSIA [None]
  - DYSPHORIA [None]
  - DYSPNOEA [None]
  - EMOTIONAL DISORDER [None]
  - FEAR [None]
  - FEELING ABNORMAL [None]
  - HEADACHE [None]
  - HOT FLUSH [None]
  - HYPERACUSIS [None]
  - HYPERHIDROSIS [None]
  - HYPERSENSITIVITY [None]
  - ILL-DEFINED DISORDER [None]
  - INFLUENZA LIKE ILLNESS [None]
  - INSOMNIA [None]
  - IRRITABILITY [None]
  - LIBIDO DECREASED [None]
  - MEMORY IMPAIRMENT [None]
  - MENTAL DISORDER [None]
  - MOOD SWINGS [None]
  - MUSCLE SPASMS [None]
  - MUSCLE TWITCHING [None]
  - NAUSEA [None]
  - NERVOUSNESS [None]
  - NIGHT SWEATS [None]
  - NIGHTMARE [None]
  - PALPITATIONS [None]
  - PANIC ATTACK [None]
  - PARAESTHESIA [None]
  - SELF-INJURIOUS IDEATION [None]
  - SOMNOLENCE [None]
  - SPEECH DISORDER [None]
  - STARING [None]
  - SUICIDAL IDEATION [None]
  - TINNITUS [None]
  - TREMOR [None]
  - VISION BLURRED [None]
  - VISUAL DISTURBANCE [None]
